FAERS Safety Report 8426989-1 (Version None)
Quarter: 2012Q2

REPORT INFORMATION
  Report Type: 
  Country: None (occurrence: None)
  Receive Date: 20120611
  Receipt Date: 20120529
  Transmission Date: 20120825
  Serious: Yes (Life-Threatening, Hospitalization, Disabling, Other)
  Sender: FDA-Public Use
  Company Number: DE-ROCHE-1060680

PATIENT
  Age: 50 Year
  Sex: Male
  Weight: 84 kg

DRUGS (6)
  1. COPEGUS [Suspect]
     Indication: HEPATITIS C
     Route: 048
     Dates: start: 20120114, end: 20120326
  2. BOCEPREVIR [Suspect]
     Dates: start: 20120214, end: 20120326
  3. PEGASYS [Suspect]
     Indication: HEPATITIS C
     Route: 058
     Dates: start: 20120114, end: 20120321
  4. DOXYCYCLINE [Concomitant]
     Indication: BRONCHITIS
     Route: 048
     Dates: start: 20120228, end: 20120304
  5. COPEGUS [Suspect]
     Dosage: 400-800 MG
     Dates: start: 20120114, end: 20120326
  6. BOCEPREVIR [Suspect]
     Indication: HEPATITIS C
     Route: 048
     Dates: start: 20120214, end: 20120326

REACTIONS (5)
  - ANAEMIA [None]
  - ACUTE MYOCARDIAL INFARCTION [None]
  - BRONCHITIS BACTERIAL [None]
  - PANCYTOPENIA [None]
  - MYOCARDIAL INFARCTION [None]
